FAERS Safety Report 8097618-4 (Version None)
Quarter: 2012Q1

REPORT INFORMATION
  Report Type: 
  Country: None (occurrence: None)
  Receive Date: 20120128
  Receipt Date: 20110705
  Transmission Date: 20120608
  Serious: No
  Sender: FDA-Public Use
  Company Number: US-ABBOTT-11P-163-0836318-00

PATIENT
  Age: 59 Year
  Sex: Female

DRUGS (2)
  1. CELEBREX [Concomitant]
     Indication: OSTEOARTHRITIS
     Dosage: 200 MG - DAILY
  2. HUMIRA [Suspect]
     Indication: COLITIS ULCERATIVE
     Dosage: LOADING DOSE
     Dates: start: 20110620, end: 20110620

REACTIONS (6)
  - INJECTION SITE REACTION [None]
  - DRUG DOSE OMISSION [None]
  - INJECTION SITE ERYTHEMA [None]
  - INJECTION SITE PAPULE [None]
  - INJECTION SITE PRURITUS [None]
  - INJECTION SITE PAIN [None]
